FAERS Safety Report 14222458 (Version 1)
Quarter: 2017Q4

REPORT INFORMATION
  Report Type: Spontaneous
  Country: FR (occurrence: FR)
  Receive Date: 20171124
  Receipt Date: 20171124
  Transmission Date: 20180321
  Serious: Yes (Disabling)
  Sender: FDA-Public Use
  Company Number: FR-ACCORD-061286

PATIENT
  Age: 63 Year
  Sex: Male

DRUGS (7)
  1. BISOCE [Concomitant]
     Active Substance: BISOPROLOL
  2. OXALIPLATIN HOSPIRA [Suspect]
     Active Substance: OXALIPLATIN
     Indication: COLON CANCER
     Dosage: STRENGTH: 5 MG/ML
     Route: 042
     Dates: start: 201603, end: 201608
  3. DUOPLAVIN [Concomitant]
     Active Substance: ASPIRIN\CLOPIDOGREL
     Dosage: STRENGTH 75 MG/75 MG
  4. RAMIPRIL. [Concomitant]
     Active Substance: RAMIPRIL
  5. TAHOR [Concomitant]
     Active Substance: ATORVASTATIN CALCIUM
  6. FLUOROURACIL ACCORD [Suspect]
     Active Substance: FLUOROURACIL
     Indication: COLON CANCER
     Dosage: STRENGTH: 50 MG/ML
     Route: 042
     Dates: start: 201603, end: 201608
  7. PANTOPRAZOLE [Concomitant]
     Active Substance: PANTOPRAZOLE

REACTIONS (1)
  - Peripheral sensory neuropathy [Recovering/Resolving]

NARRATIVE: CASE EVENT DATE: 201610
